FAERS Safety Report 19931477 (Version 1)
Quarter: 2021Q4

REPORT INFORMATION
  Report Type: Spontaneous
  Country: GB (occurrence: GB)
  Receive Date: 20211007
  Receipt Date: 20211007
  Transmission Date: 20220304
  Serious: Yes (Other)
  Sender: FDA-Public Use
  Company Number: None

PATIENT
  Sex: Female

DRUGS (1)
  1. ESCITALOPRAM OXALATE [Suspect]
     Active Substance: ESCITALOPRAM OXALATE
     Indication: Product used for unknown indication
     Dosage: 10 MG
     Route: 065

REACTIONS (7)
  - Cerebral disorder [Unknown]
  - Impulsive behaviour [Unknown]
  - Mania [Unknown]
  - Tremor [Unknown]
  - Vomiting [Unknown]
  - Insomnia [Unknown]
  - Product quality issue [Unknown]
